FAERS Safety Report 13632188 (Version 1)
Quarter: 2017Q2

REPORT INFORMATION
  Report Type: Spontaneous
  Country: US (occurrence: US)
  Receive Date: 20170531
  Receipt Date: 20170531
  Transmission Date: 20170830
  Serious: No
  Sender: FDA-Public Use
  Company Number: US-ASTELLAS-1445832

PATIENT
  Sex: Female

DRUGS (4)
  1. TARCEVA [Suspect]
     Active Substance: ERLOTINIB HYDROCHLORIDE
     Route: 048
  2. TARCEVA [Suspect]
     Active Substance: ERLOTINIB HYDROCHLORIDE
     Route: 048
     Dates: start: 20140806
  3. LISINOPRIL. [Concomitant]
     Active Substance: LISINOPRIL
  4. TARCEVA [Suspect]
     Active Substance: ERLOTINIB HYDROCHLORIDE
     Indication: BRONCHIAL CARCINOMA
     Route: 048
     Dates: start: 20140509

REACTIONS (7)
  - Insomnia [Unknown]
  - Dry mouth [Unknown]
  - Oral disorder [Unknown]
  - Tongue dry [Unknown]
  - Dry skin [Unknown]
  - Nail disorder [Unknown]
  - Varicella [Unknown]
